FAERS Safety Report 5227075-4 (Version None)
Quarter: 2007Q1

REPORT INFORMATION
  Report Type: 
  Country: None (occurrence: None)
  Receive Date: 20070202
  Receipt Date: 20070123
  Transmission Date: 20070707
  Serious: Yes (Hospitalization)
  Sender: FDA-Public Use
  Company Number: FRWYE853925JUL05

PATIENT
  Age: 69 Year
  Sex: Female

DRUGS (8)
  1. ENBREL [Suspect]
     Indication: RHEUMATOID ARTHRITIS
     Route: 058
     Dates: start: 20050310, end: 20050524
  2. ENBREL [Suspect]
     Indication: VASCULITIS
  3. CORTANCYL [Concomitant]
     Dosage: UNKNOWN
     Route: 048
  4. TRIMETAZIDINE [Concomitant]
     Dosage: UNKNOWN
     Route: 048
  5. MOLSIDOMINE [Concomitant]
     Dosage: UNKNWON
     Route: 048
  6. AMLOR [Concomitant]
     Dosage: 5 MG
     Route: 048
  7. HEMIGOXINE NATIVELLE [Concomitant]
     Dosage: UNKNOWN
     Route: 048
  8. PLAQUENIL [Concomitant]
     Dosage: UNKNWON
     Route: 048

REACTIONS (5)
  - ATRIAL FIBRILLATION [None]
  - BUNDLE BRANCH BLOCK LEFT [None]
  - ELECTROCARDIOGRAM REPOLARISATION ABNORMALITY [None]
  - HYPERTENSION [None]
  - MALAISE [None]
